FAERS Safety Report 9354649 (Version 2)
Quarter: 2013Q3

REPORT INFORMATION
  Report Type: Report from Study
  Country: BR (occurrence: BR)
  Receive Date: 20130618
  Receipt Date: 20130904
  Transmission Date: 20140515
  Serious: Yes (Hospitalization, Other)
  Sender: FDA-Public Use
  Company Number: BR-ELI_LILLY_AND_COMPANY-BR201209000330

PATIENT
  Age: 74 Year
  Sex: Female
  Weight: 49 kg

DRUGS (5)
  1. TERIPARATIDE [Suspect]
     Indication: OSTEOPOROSIS
     Dosage: 20 UG, QD
     Route: 058
     Dates: start: 20120903, end: 20120910
  2. TERIPARATIDE [Suspect]
     Dosage: 20 UG, QD
     Route: 058
     Dates: start: 20120913
  3. PURAN T4 [Concomitant]
     Indication: THYROID DISORDER
     Dosage: UNK, QD
     Route: 048
  4. CARDIZEM                           /00489701/ [Concomitant]
     Indication: ANGINA PECTORIS
     Dosage: 30 MG, BID
     Route: 048
  5. CARDIZEM                           /00489701/ [Concomitant]
     Dosage: 60 MG, BID
     Route: 048

REACTIONS (16)
  - Dyspnoea [Not Recovered/Not Resolved]
  - Malaise [Not Recovered/Not Resolved]
  - Hypertension [Not Recovered/Not Resolved]
  - Angina pectoris [Unknown]
  - Pulmonary embolism [Not Recovered/Not Resolved]
  - Headache [Unknown]
  - Dry mouth [Unknown]
  - Dizziness [Not Recovered/Not Resolved]
  - Asthenia [Not Recovered/Not Resolved]
  - Spinal pain [Not Recovered/Not Resolved]
  - Pain [Not Recovered/Not Resolved]
  - Nervousness [Unknown]
  - Intentional drug misuse [Unknown]
  - Fatigue [Unknown]
  - Injection site haematoma [Not Recovered/Not Resolved]
  - Injection site haemorrhage [Not Recovered/Not Resolved]
